FAERS Safety Report 14057346 (Version 2)
Quarter: 2017Q4

REPORT INFORMATION
  Report Type: Spontaneous
  Country: US (occurrence: US)
  Receive Date: 20171006
  Receipt Date: 20171213
  Transmission Date: 20180321
  Serious: No
  Sender: FDA-Public Use
  Company Number: US-PFIZER INC-2017428198

PATIENT
  Age: 52 Year
  Sex: Female
  Weight: 67.13 kg

DRUGS (3)
  1. LISINOPRIL. [Concomitant]
     Active Substance: LISINOPRIL
     Indication: HYPERTENSION
     Dosage: 2.5 MG, 1X/DAY
     Dates: start: 201604
  2. EUCRISA [Suspect]
     Active Substance: CRISABOROLE
     Indication: DERMATITIS
  3. EUCRISA [Suspect]
     Active Substance: CRISABOROLE
     Indication: ECZEMA
     Dosage: 2 %, 2X/DAY (APPLIED TO THE AFFECTED AREA AS NEEDED)
     Route: 061
     Dates: start: 201708, end: 20170930

REACTIONS (6)
  - Application site exfoliation [Recovering/Resolving]
  - Application site pain [Unknown]
  - Application site hypersensitivity [Unknown]
  - Exfoliative rash [Unknown]
  - Application site rash [Recovering/Resolving]
  - Application site swelling [Recovering/Resolving]

NARRATIVE: CASE EVENT DATE: 2017
